FAERS Safety Report 5744208-1 (Version None)
Quarter: 2008Q2

REPORT INFORMATION
  Report Type: 
  Country: None (occurrence: None)
  Receive Date: 20080520
  Receipt Date: 20080512
  Transmission Date: 20081010
  Serious: Yes (Death)
  Sender: FDA-Public Use
  Company Number: US-PURDUE-USA_2008_0032388

PATIENT
  Age: 74 Year
  Sex: Male

DRUGS (3)
  1. OXYCONTIN [Suspect]
     Indication: NECK PAIN
     Dosage: 60 MG, DAILY
     Dates: end: 20080301
  2. ADVAIR DISKUS 100/50 [Concomitant]
  3. ALBUTEROL [Concomitant]

REACTIONS (2)
  - LUNG NEOPLASM MALIGNANT [None]
  - POST PROCEDURAL PNEUMONIA [None]
